FAERS Safety Report 6029830-X (Version None)
Quarter: 2009Q1

REPORT INFORMATION
  Report Type: 
  Country: None (occurrence: None)
  Receive Date: 20090106
  Receipt Date: 20090106
  Transmission Date: 20090719
  Serious: Yes (Disabling)
  Sender: FDA-Public Use
  Company Number: None

PATIENT
  Sex: Male
  Weight: 113.3993 kg

DRUGS (1)
  1. VANCOMYCIN HYDROCHLORIDE [Suspect]
     Indication: PERITONITIS
     Dates: start: 20080701

REACTIONS (3)
  - DRUG HYPERSENSITIVITY [None]
  - NERVOUS SYSTEM DISORDER [None]
  - VERTIGO [None]
